FAERS Safety Report 9049215 (Version 1)
Quarter: 2013Q1

REPORT INFORMATION
  Report Type: Spontaneous
  Country: US (occurrence: None)
  Receive Date: 20130130
  Receipt Date: 20130130
  Transmission Date: 20140127
  Serious: No
  Sender: FDA-Public Use
  Company Number: None

PATIENT
  Sex: 0

DRUGS (1)
  1. COPAXONE [Suspect]
     Indication: MULTIPLE SCLEROSIS
     Dates: start: 2007, end: 2012

REACTIONS (9)
  - Fall [None]
  - Head injury [None]
  - Limb injury [None]
  - Back pain [None]
  - Blood pressure increased [None]
  - Local swelling [None]
  - Movement disorder [None]
  - Pain [None]
  - Pain in extremity [None]
